FAERS Safety Report 6675314-5 (Version None)
Quarter: 2010Q2

REPORT INFORMATION
  Report Type: 
  Country: None (occurrence: None)
  Receive Date: 20100409
  Receipt Date: 20100210
  Transmission Date: 20101027
  Serious: No
  Sender: FDA-Public Use
  Company Number: A0841886A

PATIENT
  Age: 75 Year
  Sex: Female

DRUGS (4)
  1. TYKERB [Suspect]
     Indication: BREAST CANCER
     Dosage: 5TAB PER DAY
     Route: 048
     Dates: start: 20100121
  2. NEXIUM [Concomitant]
  3. AROMASIN [Concomitant]
  4. LABETALOL HCL [Concomitant]

REACTIONS (5)
  - ARTHROPATHY [None]
  - BACK PAIN [None]
  - EPISTAXIS [None]
  - GAIT DISTURBANCE [None]
  - RASH [None]
